FAERS Safety Report 10116730 (Version 2)
Quarter: 2014Q2

REPORT INFORMATION
  Report Type: Spontaneous
  Country: US (occurrence: US)
  Receive Date: 20140425
  Receipt Date: 20140425
  Transmission Date: 20141212
  Serious: No
  Sender: FDA-Public Use
  Company Number: US-GILEAD-2012-0060058

PATIENT
  Age: 53 Year
  Sex: 0

DRUGS (1)
  1. ATRIPLA [Suspect]
     Indication: HIV INFECTION

REACTIONS (5)
  - Homeless [Unknown]
  - Unevaluable event [Unknown]
  - Bacterial food poisoning [Unknown]
  - Unevaluable event [Unknown]
  - Dyspepsia [Unknown]
